FAERS Safety Report 17057905 (Version 1)
Quarter: 2019Q4

REPORT INFORMATION
  Report Type: Spontaneous
  Country: US (occurrence: US)
  Receive Date: 20191120
  Receipt Date: 20191120
  Transmission Date: 20200122
  Serious: Yes (Hospitalization)
  Sender: FDA-Public Use
  Company Number: None

PATIENT
  Sex: Male

DRUGS (4)
  1. OMNITROPE [Suspect]
     Active Substance: SOMATROPIN
     Indication: CONGENITAL ANOMALY
     Dosage: ?          OTHER FREQUENCY:QPM;?
     Route: 058
     Dates: start: 20190208
  2. TESTOP CYP [Concomitant]
  3. NORDITROPIN [Concomitant]
     Active Substance: SOMATROPIN
  4. LEVOTHYROXIN [Concomitant]
     Active Substance: LEVOTHYROXINE

REACTIONS (1)
  - Hospitalisation [None]
